FAERS Safety Report 8765294 (Version 2)
Quarter: 2012Q4

REPORT INFORMATION
  Report Type: Report from Study
  Country: DE (occurrence: DE)
  Receive Date: 20120831
  Receipt Date: 20121016
  Transmission Date: 20130627
  Serious: Yes (Hospitalization)
  Sender: FDA-Public Use
  Company Number: DE-TEVA-355628USA

PATIENT
  Age: 77 Year
  Sex: Male
  Weight: 104 kg

DRUGS (12)
  1. TREANDA [Suspect]
     Indication: NON-HODGKIN^S LYMPHOMA UNSPECIFIED HISTOLOGY INDOLENT
     Dates: start: 20110221, end: 20110420
  2. RITUXIMAB [Suspect]
     Indication: NON-HODGKIN^S LYMPHOMA UNSPECIFIED HISTOLOGY INDOLENT
     Dates: start: 20110221, end: 20110420
  3. VERGENTAN [Concomitant]
     Dates: start: 20110225
  4. ALLOPURINOL [Concomitant]
     Dates: start: 20110222
  5. TORASEMID SANDOZ [Concomitant]
  6. METFORMIN [Concomitant]
  7. GLIBENCLAMID [Concomitant]
  8. PREDNISOLONE [Concomitant]
     Dates: start: 20110222
  9. RANITIDIN [Concomitant]
  10. KEVATRIL [Concomitant]
     Dates: start: 20110222
  11. NACL [Concomitant]
  12. AERIUS [Concomitant]
     Dates: start: 20111011

REACTIONS (2)
  - Pulmonary embolism [Recovered/Resolved]
  - Venous thrombosis limb [Recovering/Resolving]
